FAERS Safety Report 10016883 (Version 1)
Quarter: 2014Q1

REPORT INFORMATION
  Report Type: Spontaneous
  Country: US (occurrence: US)
  Receive Date: 20140318
  Receipt Date: 20140318
  Transmission Date: 20141002
  Serious: No
  Sender: FDA-Public Use
  Company Number: US-009507513-1403USA008080

PATIENT
  Sex: Female

DRUGS (1)
  1. JANUMET [Suspect]
     Dosage: UNK
     Route: 048
     Dates: start: 20140312

REACTIONS (3)
  - Blood glucose decreased [Unknown]
  - Malaise [Unknown]
  - Dyspepsia [Unknown]
